FAERS Safety Report 4982283-2 (Version None)
Quarter: 2006Q2

REPORT INFORMATION
  Report Type: 
  Country: None (occurrence: None)
  Receive Date: 20060424
  Receipt Date: 20060424
  Transmission Date: 20061013
  Serious: Yes (Life-Threatening, Hospitalization)
  Sender: FDA-Public Use
  Company Number: None

PATIENT
  Sex: Female
  Weight: 91.173 kg

DRUGS (2)
  1. ZOCOR [Suspect]
     Indication: HYPERLIPIDAEMIA
     Dosage: 40 MG DAILY PO
     Route: 048
     Dates: start: 20050301, end: 20060311
  2. AZITHROMYCIN [Suspect]
     Indication: INFLUENZA LIKE ILLNESS
     Dosage: 250 MG DAILY PO
     Route: 048
     Dates: start: 20060224, end: 20060301

REACTIONS (7)
  - ASTHENIA [None]
  - CHILLS [None]
  - HEPATIC ENZYME INCREASED [None]
  - INFLUENZA LIKE ILLNESS [None]
  - MUSCULAR WEAKNESS [None]
  - PYREXIA [None]
  - RHABDOMYOLYSIS [None]
